FAERS Safety Report 6405403-1 (Version None)
Quarter: 2009Q4

REPORT INFORMATION
  Report Type: 
  Country: None (occurrence: None)
  Receive Date: 20091019
  Receipt Date: 20091009
  Transmission Date: 20100525
  Serious: Yes (Death, Life-Threatening)
  Sender: FDA-Public Use
  Company Number: JP-PFIZER INC-2009275625

PATIENT
  Age: 78 Year

DRUGS (10)
  1. CEFAMEZIN [Suspect]
     Indication: INFECTION
     Dosage: 1 G, 2X/DAY
     Route: 042
     Dates: start: 20090812, end: 20090817
  2. NEUTROGIN [Suspect]
     Indication: GRANULOCYTOPENIA
     Dosage: 100 UG, UID/QD
     Route: 058
     Dates: start: 20090812, end: 20090817
  3. SOLU-CORTEF [Concomitant]
     Dosage: UNK
     Dates: start: 20090812, end: 20090824
  4. PREDNISOLONE [Concomitant]
  5. ALLELOCK [Concomitant]
     Dosage: UNK
     Dates: start: 20090430
  6. MUCOSTA [Concomitant]
     Dosage: UNK
     Dates: start: 20090430
  7. TRYPTANOL [Concomitant]
     Dosage: UNK
     Dates: start: 20090430
  8. METHYCOBAL [Concomitant]
     Dosage: UNK
     Dates: start: 20090430
  9. BIAPENEM [Concomitant]
     Dosage: UNK
     Dates: start: 20090818, end: 20090823
  10. STRONG NEO-MINOPHAGEN C [Concomitant]
     Dosage: UNK
     Dates: start: 20090816, end: 20090829

REACTIONS (2)
  - ACUTE FEBRILE NEUTROPHILIC DERMATOSIS [None]
  - DISSEMINATED INTRAVASCULAR COAGULATION [None]
